FAERS Safety Report 8544937-0 (Version None)
Quarter: 2012Q3

REPORT INFORMATION
  Report Type: 
  Country: None (occurrence: None)
  Receive Date: 20120727
  Receipt Date: 20120717
  Transmission Date: 20120928
  Serious: Yes (Death, Life-Threatening, Hospitalization)
  Sender: FDA-Public Use
  Company Number: JP-009507513-2012SP015613

PATIENT

DRUGS (38)
  1. TEMOZOLOMIDE [Suspect]
     Indication: ANAPLASTIC ASTROCYTOMA
     Dosage: 75 MG/M2, QD
     Route: 041
     Dates: start: 20110119, end: 20110301
  2. TEMODAL [Suspect]
     Route: 041
     Dates: start: 20110516, end: 20110520
  3. TEMODAL [Suspect]
     Route: 041
     Dates: start: 20110719, end: 20110723
  4. WARFARIN SODIUM [Concomitant]
     Dosage: DAILY DOSAGE UNKNOWN
     Route: 048
     Dates: start: 20110117, end: 20110330
  5. TEMOZOLOMIDE [Suspect]
     Dosage: 150 MG/M2, QD
     Route: 041
     Dates: start: 20110317, end: 20110321
  6. WARFARIN POTASSIUM [Concomitant]
     Indication: PRODUCT USED FOR UNKNOWN INDICATION
     Route: 048
     Dates: start: 20110117, end: 20110330
  7. LAXOBERON [Concomitant]
     Indication: PRODUCT USED FOR UNKNOWN INDICATION
     Dosage: DAILY DOSAGE UNKNOWN
     Route: 048
     Dates: start: 20110113, end: 20110216
  8. GRANISETRON [Concomitant]
     Indication: PROPHYLAXIS
     Route: 041
     Dates: start: 20110119, end: 20110123
  9. TEMODAL [Suspect]
     Route: 041
     Dates: start: 20110622, end: 20110626
  10. TEGRETOL [Concomitant]
     Indication: PRODUCT USED FOR UNKNOWN INDICATION
     Route: 048
     Dates: end: 20110315
  11. INDOMETHACIN [Concomitant]
     Indication: PROPHYLAXIS
     Dosage: DAILY DOSAGE UNKNOWN
     Route: 054
     Dates: start: 20110113, end: 20110216
  12. TEMODAL [Suspect]
     Route: 041
     Dates: start: 20110119, end: 20110301
  13. WARFARIN SODIUM [Concomitant]
     Route: 048
  14. NEUQUINON [Concomitant]
     Indication: PRODUCT USED FOR UNKNOWN INDICATION
     Route: 048
     Dates: end: 20110330
  15. NEUQUINON [Concomitant]
     Dosage: DAILY DOSAGE UNKNOWN
     Route: 048
     Dates: start: 20110111, end: 20110330
  16. NEUQUINON [Concomitant]
     Route: 048
  17. LORAZEPAM [Concomitant]
     Dosage: DAILY DOSAGE UNKNOWN
     Route: 048
     Dates: start: 20110111, end: 20110330
  18. MAGNESIUM OXIDE [Concomitant]
     Indication: PRODUCT USED FOR UNKNOWN INDICATION
     Route: 048
     Dates: start: 20110129, end: 20110216
  19. SULFAMETHOXAZOLE AND TRIMETHOPRIM [Concomitant]
     Indication: ANTIFUNGAL PROPHYLAXIS
     Dosage: DAILY DOSAGE UNKNOWN
     Route: 048
     Dates: start: 20110120, end: 20110328
  20. DIOVAN [Concomitant]
     Dosage: DAILY DOSAGE UNKNOWN
     Route: 048
     Dates: start: 20110111, end: 20110330
  21. LORAZEPAM [Concomitant]
     Indication: PRODUCT USED FOR UNKNOWN INDICATION
     Route: 048
     Dates: end: 20110330
  22. TEGRETOL [Concomitant]
     Dosage: DAILY DOSAGE UNKNOWN
     Route: 048
     Dates: start: 20110111, end: 20110315
  23. URSO 250 [Concomitant]
     Indication: PRODUCT USED FOR UNKNOWN INDICATION
     Dosage: DAILY DOSAGE UNKNOWN
     Route: 048
     Dates: start: 20110116, end: 20110315
  24. ZOLPIDEM [Concomitant]
     Indication: PRODUCT USED FOR UNKNOWN INDICATION
     Dosage: DAILY DOSAGE UNKNOWN
     Route: 048
     Dates: start: 20110113, end: 20110216
  25. TEMOZOLOMIDE [Suspect]
     Dosage: 200 MG/M2, QD
     Route: 041
     Dates: start: 20110414, end: 20110723
  26. DIOVAN [Concomitant]
     Indication: PRODUCT USED FOR UNKNOWN INDICATION
     Route: 048
     Dates: end: 20110330
  27. SIMVASTATIN [Concomitant]
     Indication: PRODUCT USED FOR UNKNOWN INDICATION
     Route: 048
     Dates: end: 20110330
  28. PREDNISOLONE [Concomitant]
     Indication: PRODUCT USED FOR UNKNOWN INDICATION
     Route: 048
     Dates: end: 20110315
  29. TEMODAL [Suspect]
     Route: 041
     Dates: start: 20110317, end: 20110321
  30. TEMODAL [Suspect]
     Route: 041
     Dates: start: 20110414, end: 20110418
  31. TEMODAL [Suspect]
     Route: 041
  32. CEFAZOLIN SODIUM [Concomitant]
     Route: 048
  33. LANSOPRAZOLE [Concomitant]
     Dosage: DAILY DOSAGE UNKNOWN
     Route: 048
     Dates: start: 20110111, end: 20110330
  34. SULFAMETHOXAZOLE AND TRIMETHOPRIM [Concomitant]
  35. LANSOPRAZOLE [Concomitant]
     Indication: PRODUCT USED FOR UNKNOWN INDICATION
     Route: 048
     Dates: end: 20110330
  36. PRIMPERAN TAB [Concomitant]
     Indication: PRODUCT USED FOR UNKNOWN INDICATION
     Route: 048
     Dates: start: 20110124, end: 20110209
  37. PREDNISOLONE [Suspect]
     Dosage: DAILY DOSAGE UNKNOWN
     Route: 048
     Dates: start: 20110111, end: 20110315
  38. SIMVASTATIN [Concomitant]
     Dosage: DAILY DOSAGE UNKNOWN
     Route: 048
     Dates: start: 20110111, end: 20110330

REACTIONS (7)
  - DECREASED APPETITE [None]
  - NAUSEA [None]
  - NEUTROPHIL COUNT INCREASED [None]
  - ASTHENIA [None]
  - DIARRHOEA [None]
  - SEPSIS [None]
  - LYMPHOCYTE COUNT DECREASED [None]
